FAERS Safety Report 12996029 (Version 3)
Quarter: 2016Q4

REPORT INFORMATION
  Report Type: Spontaneous
  Country: JP (occurrence: JP)
  Receive Date: 20161202
  Receipt Date: 20161221
  Transmission Date: 20170207
  Serious: Yes (Other)
  Sender: FDA-Public Use
  Company Number: JP-BAUSCH-BL-2016-030042

PATIENT
  Age: 81 Year
  Sex: Male

DRUGS (3)
  1. VISUDYNE [Suspect]
     Active Substance: VERTEPORFIN
     Indication: POLYPOIDAL CHOROIDAL VASCULOPATHY
     Route: 065
     Dates: start: 200805
  2. EYLEA [Concomitant]
     Active Substance: AFLIBERCEPT
     Indication: PRODUCT USED FOR UNKNOWN INDICATION
     Route: 050
  3. LUCENTIS [Suspect]
     Active Substance: RANIBIZUMAB
     Indication: AGE-RELATED MACULAR DEGENERATION
     Route: 050
     Dates: start: 200909

REACTIONS (12)
  - Flat anterior chamber of eye [Unknown]
  - Cerebral infarction [Unknown]
  - Angle closure glaucoma [Unknown]
  - Retinal detachment [Unknown]
  - Cataract [Unknown]
  - Vitreous haemorrhage [Unknown]
  - Retinal thickening [Unknown]
  - Macular degeneration [Unknown]
  - Choroidal haemorrhage [Unknown]
  - Visual acuity reduced [Unknown]
  - Atrial flutter [Unknown]
  - Drug ineffective [Unknown]
